FAERS Safety Report 13034564 (Version 1)
Quarter: 2016Q4

REPORT INFORMATION
  Report Type: Spontaneous
  Country: US (occurrence: US)
  Receive Date: 20161216
  Receipt Date: 20161216
  Transmission Date: 20170207
  Serious: Yes (Hospitalization)
  Sender: FDA-Public Use
  Company Number: None

PATIENT
  Age: 63 Year
  Sex: Male

DRUGS (1)
  1. CAPECITABINE 500MG + 150MG ACCORD [Suspect]
     Active Substance: CAPECITABINE
     Indication: RECTAL NEOPLASM
     Dosage: 1650MG TWICE A DAY FOR 2 WEEKS ON 1 PO
     Route: 048
     Dates: start: 20160414

REACTIONS (2)
  - Blindness [None]
  - Hyperglycaemia [None]

NARRATIVE: CASE EVENT DATE: 20161115
